FAERS Safety Report 19562724 (Version 1)
Quarter: 2021Q3

REPORT INFORMATION
  Report Type: Report from Study
  Country: None (occurrence: US)
  Receive Date: 20210714
  Receipt Date: 20210714
  Transmission Date: 20211014
  Serious: Yes (Hospitalization, Other)
  Sender: FDA-Public Use
  Company Number: US-ABBVIE-21K-163-3931813-00

PATIENT
  Sex: Female

DRUGS (1)
  1. HUMIRA [Suspect]
     Active Substance: ADALIMUMAB
     Indication: ANKYLOSING SPONDYLITIS
     Dosage: CITRATE FREE
     Route: 058
     Dates: start: 20210104

REACTIONS (15)
  - Septic shock [Recovering/Resolving]
  - Tenderness [Unknown]
  - Neck pain [Unknown]
  - Urinary tract infection [Recovered/Resolved with Sequelae]
  - Fatigue [Unknown]
  - Loss of personal independence in daily activities [Unknown]
  - General physical health deterioration [Unknown]
  - Injury associated with device [Unknown]
  - Urinary tract disorder [Unknown]
  - Joint range of motion decreased [Unknown]
  - Sluggishness [Unknown]
  - Musculoskeletal stiffness [Unknown]
  - Dysstasia [Unknown]
  - Back pain [Unknown]
  - Arthralgia [Unknown]

NARRATIVE: CASE EVENT DATE: 2021
